FAERS Safety Report 14608543 (Version 1)
Quarter: 2018Q1

REPORT INFORMATION
  Report Type: Spontaneous
  Country: US (occurrence: US)
  Receive Date: 20180307
  Receipt Date: 20180307
  Transmission Date: 20180509
  Serious: Yes (Hospitalization)
  Sender: FDA-Public Use
  Company Number: US-SA-2018SA006941

PATIENT
  Sex: Female

DRUGS (1)
  1. DUPIXENT [Suspect]
     Active Substance: DUPILUMAB
     Indication: DERMATITIS ATOPIC
     Route: 058
     Dates: start: 20180131

REACTIONS (6)
  - Pancreatitis [Recovering/Resolving]
  - Fatigue [Unknown]
  - Dermatitis [Unknown]
  - Therapeutic response decreased [Unknown]
  - Cholelithiasis [Recovering/Resolving]
  - Diverticulitis [Recovering/Resolving]
